FAERS Safety Report 16658931 (Version 2)
Quarter: 2020Q1

REPORT INFORMATION
  Report Type: Spontaneous
  Country: JP (occurrence: JP)
  Receive Date: 20190801
  Receipt Date: 20200212
  Transmission Date: 20200409
  Serious: No
  Sender: FDA-Public Use
  Company Number: JP-TAKEDA-2019TJP017261AA

PATIENT
  Age: 76 Year
  Sex: Female
  Weight: 57.1 kg

DRUGS (11)
  1. ROZEREM [Suspect]
     Active Substance: RAMELTEON
     Indication: INSOMNIA
     Dosage: 8 MILLIGRAM, QD
     Route: 048
     Dates: start: 20190711, end: 20190715
  2. CALONAL [Concomitant]
     Active Substance: ACETAMINOPHEN
     Indication: ANALGESIC THERAPY
     Dosage: 400 MILLIGRAM, BID
     Route: 048
     Dates: start: 2018, end: 20190723
  3. LIXIANA [Concomitant]
     Active Substance: EDOXABAN TOSYLATE
     Indication: THROMBOSIS PROPHYLAXIS
     Dosage: 15 MILLIGRAM, QD
     Route: 048
     Dates: start: 20190703, end: 20190716
  4. PARACETAMOL W/TRAMADOL HYDROCHLORIDE [Concomitant]
     Active Substance: ACETAMINOPHEN\TRAMADOL HYDROCHLORIDE
     Indication: ANALGESIC THERAPY
     Dosage: 1 DOSAGE FORM, BID
     Route: 048
     Dates: start: 2018, end: 20190728
  5. FERROUS CITRATE NA [Concomitant]
     Active Substance: SODIUM FERROUS CITRATE
     Indication: ANAEMIA
     Dosage: 50 MILLIGRAM, BID
     Route: 048
     Dates: start: 2018, end: 20190724
  6. AMLODIPINE BESILATE W/CANDESARTAN CILEXETIL [Concomitant]
     Indication: HYPERTENSION
     Dosage: 1 DOSAGE FORM, QD
     Route: 048
  7. EDIROL [Concomitant]
     Active Substance: ELDECALCITOL
     Indication: OSTEOPOROSIS
     Dosage: 1 DOSAGE FORM, QD
     Route: 048
  8. MYONAL                             /01071502/ [Concomitant]
     Indication: BACK PAIN
     Dosage: 50 MILLIGRAM, TID
     Route: 048
  9. ZOLPIDEM TARTRATE. [Concomitant]
     Active Substance: ZOLPIDEM TARTRATE
     Indication: INSOMNIA
     Dosage: 5 MILLIGRAM
     Route: 048
     Dates: start: 20190701
  10. BONALON [Concomitant]
     Active Substance: ALENDRONATE SODIUM
     Indication: OSTEOPOROSIS
     Dosage: 35 MILLIGRAM, 1/WEEK
     Route: 048
  11. TORASEMIDE [Concomitant]
     Active Substance: TORSEMIDE
     Dosage: 4 MILLIGRAM, QD
     Route: 048

REACTIONS (2)
  - Rash [Recovered/Resolved]
  - Pruritus [Recovered/Resolved]

NARRATIVE: CASE EVENT DATE: 20190712
